FAERS Safety Report 14174051 (Version 8)
Quarter: 2019Q4

REPORT INFORMATION
  Report Type: Report from Study
  Country: DE (occurrence: DE)
  Receive Date: 20171109
  Receipt Date: 20191121
  Transmission Date: 20200122
  Serious: Yes (Hospitalization)
  Sender: FDA-Public Use
  Company Number: DE-ROCHE-1984492

PATIENT
  Age: 43 Year
  Sex: Female
  Weight: 82 kg

DRUGS (13)
  1. ESTRADIOL. [Concomitant]
     Active Substance: ESTRADIOL
     Dosage: 1 PUFF
     Route: 048
     Dates: start: 201806
  2. ARCOXIA [Concomitant]
     Active Substance: ETORICOXIB
     Indication: ERYTHEMA NODOSUM
     Route: 048
     Dates: start: 20170713, end: 20170809
  3. MONOVO [Concomitant]
     Indication: ERYTHEMA NODOSUM
     Dosage: 1 UNIT
     Route: 061
     Dates: start: 20170713, end: 20170817
  4. ARCOXIA [Concomitant]
     Active Substance: ETORICOXIB
     Route: 048
     Dates: start: 20170810
  5. CLEXANE [Concomitant]
     Active Substance: ENOXAPARIN SODIUM
     Indication: THROMBOSIS PROPHYLAXIS
     Route: 058
     Dates: start: 20170713
  6. VEMURAFENIB. [Suspect]
     Active Substance: VEMURAFENIB
     Indication: METASTATIC MALIGNANT MELANOMA
     Dosage: DATE OF MOST RECENT DOSE OF VEMURAFENIB 6 DOSAGE FORM (DF) PRIOR TO THE SAE: 22/AUG/2017
     Route: 048
     Dates: start: 20170629
  7. COBIMETINIB. [Suspect]
     Active Substance: COBIMETINIB
     Indication: METASTATIC MALIGNANT MELANOMA
     Dosage: 60 MG (THREE, 20 MG TABLETS) PO ONCE A DAY (PER PROTOCOL)?DATE OF MOST RECENT DOSE OF COBIMETINIB PR
     Route: 048
     Dates: start: 20170629
  8. IBUPROFEN. [Concomitant]
     Active Substance: IBUPROFEN
     Indication: MIGRAINE
     Route: 048
  9. PANTOZOL [Concomitant]
     Active Substance: PANTOPRAZOLE SODIUM
     Indication: PROPHYLAXIS
     Route: 048
  10. ATEZOLIZUMAB. [Suspect]
     Active Substance: ATEZOLIZUMAB
     Indication: METASTATIC MALIGNANT MELANOMA
     Dosage: DATE OF MOST RECENT DOSE OF BLINDED ATEZOLIZUMAB PRIOR TO THE SAE: 10/AUG/2017
     Route: 042
     Dates: start: 20170810
  11. SUMATRIPTAN. [Concomitant]
     Active Substance: SUMATRIPTAN
     Indication: MIGRAINE
     Route: 048
  12. SISARE [Concomitant]
     Route: 050
     Dates: start: 20170601, end: 201806
  13. ARCOXIA [Concomitant]
     Active Substance: ETORICOXIB
     Indication: ARTHRALGIA
     Route: 048
     Dates: start: 20170817, end: 201709

REACTIONS (1)
  - Faecaloma [Recovered/Resolved]

NARRATIVE: CASE EVENT DATE: 20170821
